FAERS Safety Report 24686386 (Version 2)
Quarter: 2024Q4

REPORT INFORMATION
  Report Type: Report from Study
  Country: GB (occurrence: GB)
  Receive Date: 20241202
  Receipt Date: 20241204
  Transmission Date: 20250115
  Serious: Yes (Other)
  Sender: NOVARTIS
  Company Number: GB-002147023-NVSC2024GB228403

PATIENT
  Sex: Female

DRUGS (1)
  1. MAYZENT [Suspect]
     Active Substance: SIPONIMOD
     Indication: Multiple sclerosis
     Dosage: 1 MG, QD
     Route: 048
     Dates: start: 2022

REACTIONS (6)
  - Skin cancer [Unknown]
  - Skin lesion [Unknown]
  - Lower respiratory tract infection [Unknown]
  - Squamous cell carcinoma [Unknown]
  - Decreased immune responsiveness [Unknown]
  - Urinary tract infection [Unknown]
